FAERS Safety Report 7866684-0 (Version None)
Quarter: 2011Q4

REPORT INFORMATION
  Report Type: 
  Country: None (occurrence: None)
  Receive Date: 20111028
  Receipt Date: 20110728
  Transmission Date: 20120403
  Serious: No
  Sender: FDA-Public Use
  Company Number: US-GLAXOSMITHKLINE-A0938802A

PATIENT
  Age: 76 Year
  Sex: Female

DRUGS (11)
  1. LISINOPRIL [Concomitant]
  2. ONE A DAY VITAMIN [Concomitant]
  3. ADVAIR DISKUS 100/50 [Suspect]
     Indication: ASTHMA
     Dosage: 1PUFF TWICE PER DAY
     Route: 055
     Dates: start: 20050101
  4. LUMIGAN EYE DROPS [Concomitant]
  5. ASCORBIC ACID [Concomitant]
  6. CALCIUM CARBONATE [Concomitant]
  7. SYNTHROID [Concomitant]
  8. EYE DROPS [Concomitant]
  9. ASPIRIN [Concomitant]
  10. FISH OIL [Concomitant]
  11. SIMVASTATIN [Concomitant]

REACTIONS (2)
  - DYSPHONIA [None]
  - PRODUCT QUALITY ISSUE [None]
